FAERS Safety Report 7523215-2 (Version None)
Quarter: 2011Q2

REPORT INFORMATION
  Report Type: 
  Country: None (occurrence: None)
  Receive Date: 20110603
  Receipt Date: 20110519
  Transmission Date: 20111010
  Serious: Yes (Hospitalization)
  Sender: FDA-Public Use
  Company Number: JP-WATSON-2011-07237

PATIENT
  Age: 37 Year
  Sex: Male

DRUGS (6)
  1. CYCLOSPORINE [Suspect]
     Indication: RENAL TRANSPLANT
     Dosage: UNK
  2. CHIMERIC CD25 MONOCLONAL ANTIBODY [Concomitant]
  3. TACROLIMUS [Suspect]
     Indication: RENAL TRANSPLANT
     Dosage: UNK
  4. AZATHIOPRINE [Concomitant]
  5. MYCOPHENOLATE MEFETIL [Concomitant]
  6. STEROIDS [Concomitant]
     Indication: RENAL TRANSPLANT
     Dosage: UNK

REACTIONS (1)
  - RHABDOMYOLYSIS [None]
